FAERS Safety Report 5259734-1 (Version None)
Quarter: 2007Q1

REPORT INFORMATION
  Report Type: 
  Country: None (occurrence: None)
  Receive Date: 20070309
  Receipt Date: 20070228
  Transmission Date: 20070707
  Serious: Yes (Hospitalization, Other)
  Sender: FDA-Public Use
  Company Number: 2006UW22189

PATIENT
  Sex: Female
  Weight: 93.6 kg

DRUGS (5)
  1. SEROQUEL [Suspect]
     Indication: DEPRESSION
     Route: 048
     Dates: start: 19970101, end: 20020101
  2. CLOZARIL [Concomitant]
     Dates: start: 19980101
  3. NAVANE [Concomitant]
     Dates: start: 19980101
  4. RISPERDAL [Concomitant]
     Dates: start: 19980101
  5. ZYPREXA [Concomitant]
     Dates: start: 19980101

REACTIONS (5)
  - DIABETES MELLITUS [None]
  - DIABETIC COMA [None]
  - KETOACIDOSIS [None]
  - NEUROLEPTIC MALIGNANT SYNDROME [None]
  - TARDIVE DYSKINESIA [None]
